FAERS Safety Report 19823958 (Version 1)
Quarter: 2021Q3

REPORT INFORMATION
  Report Type: Report from Study
  Country: US (occurrence: US)
  Receive Date: 20210914
  Receipt Date: 20210914
  Transmission Date: 20211014
  Serious: Yes (Hospitalization, Other)
  Sender: FDA-Public Use
  Company Number: NVSC2021US202454

PATIENT
  Sex: Male

DRUGS (2)
  1. ENTRESTO [Suspect]
     Active Substance: SACUBITRIL\VALSARTAN
     Indication: PRODUCT USED FOR UNKNOWN INDICATION
     Dosage: 50 MG, BID (24/26 MG)
     Route: 048
     Dates: start: 20210323
  2. ENTRESTO [Suspect]
     Active Substance: SACUBITRIL\VALSARTAN
     Dosage: 50 MG, QD ((24/26 MG))
     Route: 048

REACTIONS (7)
  - Joint injury [Unknown]
  - Fall [Unknown]
  - Chest pain [Recovering/Resolving]
  - Prescribed underdose [Unknown]
  - Myocardial infarction [Recovering/Resolving]
  - Vascular stent stenosis [Unknown]
  - Incorrect dose administered [Unknown]
